FAERS Safety Report 20945215 (Version 1)
Quarter: 2022Q2

REPORT INFORMATION
  Report Type: Spontaneous
  Country: US (occurrence: None)
  Receive Date: 20220609
  Receipt Date: 20220609
  Transmission Date: 20220721
  Serious: Yes (Death)
  Sender: FDA-Public Use
  Company Number: None

PATIENT
  Sex: Female
  Weight: 64.41 kg

DRUGS (12)
  1. ZYDELIG [Suspect]
     Active Substance: IDELALISIB
     Indication: Chronic lymphocytic leukaemia
     Dosage: 100 MG BID PO
     Route: 048
  2. ALLOPURINOL [Concomitant]
     Active Substance: ALLOPURINOL
  3. PRISTIQ EXTENDED-RELEASE [Concomitant]
     Active Substance: DESVENLAFAXINE SUCCINATE
  4. IRON SLOW RELEASE [Concomitant]
  5. HYDROCHLOROTHIAZIDE [Concomitant]
     Active Substance: HYDROCHLOROTHIAZIDE
  6. PROTONIX [Concomitant]
     Active Substance: PANTOPRAZOLE SODIUM
  7. CARAFATE [Concomitant]
     Active Substance: SUCRALFATE
  8. VITAMIN B12 [Concomitant]
     Active Substance: CYANOCOBALAMIN
  9. TRAMADOL HCL [Concomitant]
     Active Substance: TRAMADOL HYDROCHLORIDE
  10. BYSTOLIC [Concomitant]
     Active Substance: NEBIVOLOL HYDROCHLORIDE
  11. ATENOLOL [Concomitant]
     Active Substance: ATENOLOL
  12. DRAMAMINE [Concomitant]

REACTIONS (1)
  - Death [None]
